FAERS Safety Report 8277823-4 (Version None)
Quarter: 2012Q1

REPORT INFORMATION
  Report Type: 
  Country: None (occurrence: None)
  Receive Date: 20120312
  Receipt Date: 20120210
  Transmission Date: 20120608
  Serious: No
  Sender: FDA-Public Use
  Company Number: 2012SP007903

PATIENT
  Sex: Female

DRUGS (4)
  1. ABILIFY [Concomitant]
  2. SAPHRIS [Suspect]
     Indication: DEPRESSION
     Dosage: 10 MG, BID, SL
     Route: 060
  3. LAMICTAL [Concomitant]
  4. LEXAPRO [Concomitant]

REACTIONS (1)
  - WEIGHT INCREASED [None]
